FAERS Safety Report 9786108 (Version 2)
Quarter: 2014Q1

REPORT INFORMATION
  Report Type: Spontaneous
  Country: US (occurrence: None)
  Receive Date: 20131224
  Receipt Date: 20140127
  Transmission Date: 20141002
  Serious: Yes (Death)
  Sender: FDA-Public Use
  Company Number: 2013-US-004606

PATIENT
  Age: 80 Year
  Sex: Male

DRUGS (1)
  1. FAZACLO [Suspect]
     Route: 048
     Dates: start: 20120620

REACTIONS (2)
  - Death [None]
  - Cardiac arrest [None]
